FAERS Safety Report 6054931-X (Version None)
Quarter: 2009Q1

REPORT INFORMATION
  Report Type: 
  Country: None (occurrence: None)
  Receive Date: 20090122
  Receipt Date: 20090116
  Transmission Date: 20090719
  Serious: Yes (Hospitalization)
  Sender: FDA-Public Use
  Company Number: 2009SP001207

PATIENT
  Age: 73 Year
  Sex: Male
  Weight: 55 kg

DRUGS (16)
  1. NOXAFIL [Suspect]
     Indication: DRUG USE FOR UNKNOWN INDICATION
     Dosage: 200 MG; TID; PO
     Route: 048
     Dates: start: 20081023, end: 20081031
  2. CORDARONE [Suspect]
     Indication: ARRHYTHMIA
     Dosage: 1200 MG; QD;, 150 MG; QD;
     Dates: start: 20081012, end: 20081101
  3. CORDARONE [Suspect]
     Indication: ATRIAL FIBRILLATION
     Dosage: 1200 MG; QD;, 150 MG; QD;
     Dates: start: 20081012, end: 20081101
  4. CORDARONE [Suspect]
     Indication: CARDIAC FAILURE
     Dosage: 1200 MG; QD;, 150 MG; QD;
     Dates: start: 20081012, end: 20081101
  5. CORDARONE [Suspect]
     Indication: ARRHYTHMIA
     Dosage: 1200 MG; QD;, 150 MG; QD;
     Dates: start: 20081102, end: 20081110
  6. CORDARONE [Suspect]
     Indication: ATRIAL FIBRILLATION
     Dosage: 1200 MG; QD;, 150 MG; QD;
     Dates: start: 20081102, end: 20081110
  7. CORDARONE [Suspect]
     Indication: CARDIAC FAILURE
     Dosage: 1200 MG; QD;, 150 MG; QD;
     Dates: start: 20081102, end: 20081110
  8. CORDARONE [Suspect]
     Indication: ARRHYTHMIA
     Dosage: 1200 MG; QD;, 150 MG; QD;
     Dates: start: 20080701
  9. CORDARONE [Suspect]
     Indication: ATRIAL FIBRILLATION
     Dosage: 1200 MG; QD;, 150 MG; QD;
     Dates: start: 20080701
  10. CORDARONE [Suspect]
     Indication: CARDIAC FAILURE
     Dosage: 1200 MG; QD;, 150 MG; QD;
     Dates: start: 20080701
  11. SANDIMMUNE [Suspect]
     Indication: DRUG USE FOR UNKNOWN INDICATION
     Dosage: 100 MG; QD; IV
     Route: 042
     Dates: start: 20081031
  12. LASILIX [Concomitant]
  13. OMEPRAZOLE [Concomitant]
  14. HEMIGOXINE [Concomitant]
  15. PREVISCAN [Concomitant]
  16. SOLUPRED [Concomitant]

REACTIONS (18)
  - ABDOMINAL PAIN [None]
  - AGITATION [None]
  - ARRHYTHMIA [None]
  - ATRIAL FIBRILLATION [None]
  - BONE MARROW FAILURE [None]
  - CARDIAC FAILURE [None]
  - CONDITION AGGRAVATED [None]
  - CONFUSIONAL STATE [None]
  - DELUSION [None]
  - DISEASE RECURRENCE [None]
  - DRUG INTERACTION [None]
  - LYMPHOMA [None]
  - MESENTERIC VEIN THROMBOSIS [None]
  - NAUSEA [None]
  - PSYCHOTIC DISORDER [None]
  - PYREXIA [None]
  - SHOCK [None]
  - VOMITING [None]
